FAERS Safety Report 6333499-4 (Version None)
Quarter: 2009Q3

REPORT INFORMATION
  Report Type: 
  Country: None (occurrence: None)
  Receive Date: 20090828
  Receipt Date: 20090818
  Transmission Date: 20100115
  Serious: Yes (Other)
  Sender: FDA-Public Use
  Company Number: US-ABBOTT-09P-163-0592060-00

PATIENT
  Age: 52 Year
  Sex: Female

DRUGS (8)
  1. HUMIRA [Suspect]
     Indication: ANKYLOSING SPONDYLITIS
     Dosage: WEEKLY DOSING
     Route: 058
     Dates: start: 20080101, end: 20090401
  2. HUMIRA [Suspect]
     Route: 058
     Dates: start: 20090101, end: 20090601
  3. HUMIRA [Suspect]
     Route: 058
     Dates: start: 20090724
  4. PREDNISONE [Suspect]
     Indication: ANKYLOSING SPONDYLITIS
     Dates: start: 20090405, end: 20090407
  5. PREDNISONE [Suspect]
     Dates: end: 20090405
  6. PREDNISONE [Suspect]
     Dates: start: 20090101
  7. ARAVA [Suspect]
     Indication: ANKYLOSING SPONDYLITIS
     Dates: start: 20090601
  8. LEVOTHYROXINE [Concomitant]
     Indication: HYPOTHYROIDISM
     Dosage: UNKNOWN

REACTIONS (10)
  - BONE DISORDER [None]
  - BREAST CYST [None]
  - CARDIAC FAILURE CONGESTIVE [None]
  - CONTUSION [None]
  - ERYTHEMA [None]
  - MUSCLE ATROPHY [None]
  - MUSCLE RUPTURE [None]
  - ROTATOR CUFF SYNDROME [None]
  - STAPHYLOCOCCAL SEPSIS [None]
  - WEIGHT INCREASED [None]
